FAERS Safety Report 4641689-1 (Version None)
Quarter: 2005Q2

REPORT INFORMATION
  Report Type: 
  Country: None (occurrence: None)
  Receive Date: 20050420
  Receipt Date: 20050414
  Transmission Date: 20051028
  Serious: Yes (Other)
  Sender: FDA-Public Use
  Company Number: B0378324A

PATIENT
  Sex: Female

DRUGS (2)
  1. HYCAMTIN [Suspect]
     Indication: OVARIAN CANCER
     Dosage: CYCLIC INTRAVENOUS
     Route: 042
  2. ETOPOSIDE [Suspect]
     Indication: OVARIAN CANCER
     Dosage: CYCLIC ORAL
     Route: 048

REACTIONS (3)
  - ACUTE MYELOID LEUKAEMIA [None]
  - DRUG INTERACTION [None]
  - DRUG TOXICITY [None]
